FAERS Safety Report 24827685 (Version 1)
Quarter: 2025Q1

REPORT INFORMATION
  Report Type: Spontaneous
  Country: CH (occurrence: CH)
  Receive Date: 20250109
  Receipt Date: 20250109
  Transmission Date: 20250409
  Serious: No
  Sender: JAZZ
  Company Number: CH-JAZZ PHARMACEUTICALS-2024-CH-015474

PATIENT
  Sex: Male

DRUGS (1)
  1. ZEPZELCA [Suspect]
     Active Substance: LURBINECTEDIN
     Indication: Prostate cancer

REACTIONS (1)
  - Off label use [Unknown]
